FAERS Safety Report 11945802 (Version 1)
Quarter: 2016Q1

REPORT INFORMATION
  Report Type: Spontaneous
  Country: US (occurrence: US)
  Receive Date: 20160125
  Receipt Date: 20160125
  Transmission Date: 20160526
  Serious: No
  Sender: FDA-Public Use
  Company Number: US-JNJFOC-20151217538

PATIENT
  Age: 77 Year
  Sex: Female
  Weight: 54.43 kg

DRUGS (5)
  1. DORZOLAMIDE W/TIMOLOL [Concomitant]
     Indication: GLAUCOMA
     Dosage: 2 DROP EACH EYE DAILY
     Route: 065
     Dates: start: 20150615
  2. WOMENS ROGAINE UNSCENTED [Suspect]
     Active Substance: MINOXIDIL
     Indication: HAIR GROWTH ABNORMAL
     Dosage: 1/2 CAPFUL DAILY
     Route: 061
     Dates: start: 20151127
  3. MULTIVITAMINS [Concomitant]
     Active Substance: VITAMINS
     Indication: NUTRITIONAL SUPPLEMENTATION
     Route: 065
     Dates: start: 20131201
  4. WOMENS ROGAINE UNSCENTED [Suspect]
     Active Substance: MINOXIDIL
     Route: 061
  5. LATANOPROST. [Concomitant]
     Active Substance: LATANOPROST
     Indication: GLAUCOMA
     Dosage: 1 DROP EACH EYE DAILY FOR MANY YEARS
     Route: 065

REACTIONS (3)
  - Off label use [Not Recovered/Not Resolved]
  - Alopecia [Not Recovered/Not Resolved]
  - Drug administered at inappropriate site [Not Recovered/Not Resolved]

NARRATIVE: CASE EVENT DATE: 20151127
